FAERS Safety Report 7220647-7 (Version None)
Quarter: 2011Q1

REPORT INFORMATION
  Report Type: 
  Country: None (occurrence: None)
  Receive Date: 20110111
  Receipt Date: 20110106
  Transmission Date: 20110831
  Serious: Yes (Other)
  Sender: FDA-Public Use
  Company Number: JP-PFIZER INC-2010168508

PATIENT
  Age: 84 Year
  Sex: Female

DRUGS (2)
  1. LYRICA [Suspect]
     Dosage: 75 MG, 2X/DAY
     Route: 048
     Dates: start: 20101206, end: 20101207
  2. LYRICA [Suspect]
     Indication: HYPOAESTHESIA
     Dosage: 75 MG, 1X/DAY
     Route: 048
     Dates: start: 20101204, end: 20101205

REACTIONS (3)
  - DIZZINESS [None]
  - FACE INJURY [None]
  - FALL [None]
